FAERS Safety Report 23466199 (Version 2)
Quarter: 2024Q1

REPORT INFORMATION
  Report Type: Spontaneous
  Country: US (occurrence: US)
  Receive Date: 20240201
  Receipt Date: 20240314
  Transmission Date: 20240409
  Serious: No
  Sender: FDA-Public Use
  Company Number: US-SA-SAC20240124001077

PATIENT
  Age: 64 Year
  Sex: Female

DRUGS (2)
  1. DUPIXENT [Suspect]
     Active Substance: DUPILUMAB
     Indication: Dermatitis atopic
     Dosage: 300 MG, QOW
     Route: 058
  2. INSULIN NOS [Suspect]
     Active Substance: INSULIN NOS
     Dosage: UNK

REACTIONS (9)
  - Sleep disorder due to a general medical condition [Recovering/Resolving]
  - Dermatitis atopic [Recovering/Resolving]
  - Dry skin [Recovering/Resolving]
  - Pruritus [Recovering/Resolving]
  - Skin exfoliation [Recovering/Resolving]
  - Skin discolouration [Recovering/Resolving]
  - Skin haemorrhage [Recovering/Resolving]
  - Scar [Recovering/Resolving]
  - Injection site swelling [Unknown]
